FAERS Safety Report 24181681 (Version 2)
Quarter: 2024Q3

REPORT INFORMATION
  Report Type: Spontaneous
  Country: US (occurrence: US)
  Receive Date: 20240807
  Receipt Date: 20240812
  Transmission Date: 20241016
  Serious: Yes (Other)
  Sender: BIOGEN
  Company Number: US-BIOGEN-2024BI01276418

PATIENT
  Age: 55 Year
  Sex: Female

DRUGS (1)
  1. QALSODY [Suspect]
     Active Substance: TOFERSEN
     Indication: Product used for unknown indication
     Route: 050
     Dates: start: 20240425

REACTIONS (4)
  - Intracranial pressure increased [Unknown]
  - Post lumbar puncture syndrome [Unknown]
  - Procedural nausea [Unknown]
  - Procedural vomiting [Unknown]

NARRATIVE: CASE EVENT DATE: 20240719
